FAERS Safety Report 4710810-9 (Version None)
Quarter: 2005Q3

REPORT INFORMATION
  Report Type: 
  Country: None (occurrence: None)
  Receive Date: 20050711
  Receipt Date: 20050629
  Transmission Date: 20060218
  Serious: Yes (Other)
  Sender: FDA-Public Use
  Company Number: FR-BRISTOL-MYERS SQUIBB COMPANY-13026414

PATIENT
  Age: 45 Year
  Sex: Male

DRUGS (2)
  1. ZERIT [Suspect]
  2. VIDEX [Suspect]

REACTIONS (1)
  - HEMIPLEGIA [None]
